FAERS Safety Report 21838837 (Version 1)
Quarter: 2023Q1

REPORT INFORMATION
  Report Type: Spontaneous
  Country: US (occurrence: None)
  Receive Date: 20230107
  Receipt Date: 20230107
  Transmission Date: 20230418
  Serious: Yes (Life-Threatening, Hospitalization)
  Sender: FDA-Public Use
  Company Number: None

PATIENT
  Age: 64 Year
  Sex: Male
  Weight: 95 kg

DRUGS (1)
  1. WARFARIN SODIUM [Suspect]
     Active Substance: WARFARIN SODIUM
     Indication: Atrial thrombosis
     Dates: start: 20200312, end: 20221223

REACTIONS (2)
  - Haemorrhage intracranial [None]
  - Haemorrhage [None]

NARRATIVE: CASE EVENT DATE: 20221114
